FAERS Safety Report 16002126 (Version 1)
Quarter: 2019Q1

REPORT INFORMATION
  Report Type: Spontaneous
  Country: US (occurrence: US)
  Receive Date: 20190225
  Receipt Date: 20190225
  Transmission Date: 20190418
  Serious: No
  Sender: FDA-Public Use
  Company Number: PHEH2019US007534

PATIENT
  Sex: Female

DRUGS (1)
  1. TACROLIMUS. [Suspect]
     Active Substance: TACROLIMUS
     Indication: VAGINAL DISORDER
     Dosage: 1 DF, BID
     Route: 061
     Dates: start: 20190206

REACTIONS (4)
  - Vulvovaginal pruritus [Unknown]
  - Vulvovaginal pain [Unknown]
  - Vulvovaginal burning sensation [Unknown]
  - Vulvovaginal swelling [Unknown]
